FAERS Safety Report 6120980-6 (Version None)
Quarter: 2009Q1

REPORT INFORMATION
  Report Type: 
  Country: None (occurrence: None)
  Receive Date: 20090312
  Receipt Date: 20090226
  Transmission Date: 20090719
  Serious: Yes (Hospitalization)
  Sender: FDA-Public Use
  Company Number: 1000005079

PATIENT
  Age: 81 Year
  Sex: Female

DRUGS (6)
  1. MEMANTINE HCL [Suspect]
     Dosage: 20 MG (10 MG, 2 IN 1 D), ORAL
     Route: 048
  2. ATARAX [Suspect]
     Dosage: 0.5 DOSAGE FORMS (0.5 DOSAGE FORMS, 1 IN 1 D), ORAL
     Route: 048
     Dates: end: 20090107
  3. REMINYL (CAPSULES) [Suspect]
     Dosage: 24 MG (24 MG, 1 IN 1 D), ORAL
     Route: 048
  4. PAROXETINE HCL [Suspect]
     Dosage: 0.5 DOSAGE FORMS (0.5 DOSAGE FORMS, 1 IN 1 D), ORAL
     Route: 048
  5. LANTUS [Concomitant]
  6. NOVORAPID [Concomitant]

REACTIONS (6)
  - APHASIA [None]
  - ASTHENIA [None]
  - DISORIENTATION [None]
  - FALL [None]
  - HAEMATOMA [None]
  - JOINT DISLOCATION [None]
